FAERS Safety Report 7872775-0 (Version None)
Quarter: 2011Q4

REPORT INFORMATION
  Report Type: 
  Country: None (occurrence: None)
  Receive Date: 20111030
  Receipt Date: 20110425
  Transmission Date: 20120403
  Serious: No
  Sender: FDA-Public Use
  Company Number: US-AMGEN-USASP2011017503

PATIENT
  Age: 51 Year
  Sex: Male

DRUGS (4)
  1. ENBREL [Suspect]
     Indication: RHEUMATOID ARTHRITIS
     Dosage: 50 MG, QWK
     Dates: start: 20110301
  2. PREDNISONE [Concomitant]
  3. PLAQUENIL [Concomitant]
  4. CELEBREX [Concomitant]

REACTIONS (10)
  - INJECTION SITE ERYTHEMA [None]
  - INJECTION SITE PAIN [None]
  - RASH [None]
  - EPISTAXIS [None]
  - CHEST DISCOMFORT [None]
  - DIZZINESS [None]
  - NAUSEA [None]
  - HEADACHE [None]
  - INJECTION SITE PRURITUS [None]
  - INJECTION SITE REACTION [None]
